FAERS Safety Report 16301987 (Version 2)
Quarter: 2019Q2

REPORT INFORMATION
  Report Type: Report from Study
  Country: US (occurrence: US)
  Receive Date: 20190512
  Receipt Date: 20190515
  Transmission Date: 20190711
  Serious: Yes (Death, Life-Threatening, Hospitalization, Disabling)
  Sender: FDA-Public Use
  Company Number: PHHY2019US065402

PATIENT
  Age: 21 Year
  Sex: Male
  Weight: 84 kg

DRUGS (1)
  1. KYMRIAH [Suspect]
     Active Substance: TISAGENLECLEUCEL
     Indication: ACUTE LYMPHOCYTIC LEUKAEMIA
     Dosage: 0.5 X 10^8 TDN VIABLE T-CELLS
     Route: 042
     Dates: start: 20190211, end: 20190227

REACTIONS (36)
  - Cytokine release syndrome [Fatal]
  - Hepatic function abnormal [Fatal]
  - Shock [Unknown]
  - Tachycardia [Fatal]
  - Vomiting [Fatal]
  - Hypoxia [Fatal]
  - Hyperbilirubinaemia [Fatal]
  - Metabolic acidosis [Unknown]
  - Adrenal insufficiency [Unknown]
  - Respiratory failure [Unknown]
  - Encephalopathy [Unknown]
  - Respiratory distress [Fatal]
  - Fluid overload [Fatal]
  - Ammonia increased [Not Recovered/Not Resolved]
  - Hyperglycaemia [Unknown]
  - Feeding intolerance [Unknown]
  - Post procedural haemorrhage [Recovered/Resolved]
  - Ejection fraction decreased [Recovering/Resolving]
  - Pyrexia [Fatal]
  - Nervous system disorder [Unknown]
  - Status epilepticus [Unknown]
  - Acute kidney injury [Unknown]
  - Cardiovascular disorder [Unknown]
  - Blood uric acid increased [Recovering/Resolving]
  - Pancytopenia [Unknown]
  - Candida infection [Unknown]
  - Pleural effusion [Unknown]
  - Out of specification test results [Unknown]
  - Headache [Fatal]
  - Pulmonary haemorrhage [Unknown]
  - Cardiac failure [Recovering/Resolving]
  - Coagulopathy [Unknown]
  - Hypotension [Fatal]
  - Pneumonia [Unknown]
  - Multiple organ dysfunction syndrome [Unknown]
  - Staphylococcal infection [Unknown]

NARRATIVE: CASE EVENT DATE: 20190310
